FAERS Safety Report 22052067 (Version 1)
Quarter: 2023Q1

REPORT INFORMATION
  Report Type: Report from Study
  Country: US (occurrence: US)
  Receive Date: 20230302
  Receipt Date: 20230302
  Transmission Date: 20230417
  Serious: Yes (Other)
  Sender: FDA-Public Use
  Company Number: US-ABBVIE-22K-163-4498844-00

PATIENT
  Sex: Male

DRUGS (2)
  1. IMBRUVICA [Suspect]
     Active Substance: IBRUTINIB
     Indication: Chronic lymphocytic leukaemia
     Route: 048
  2. IMBRUVICA [Suspect]
     Active Substance: IBRUTINIB
     Indication: Chronic lymphocytic leukaemia
     Route: 048
     Dates: start: 20160810, end: 202301

REACTIONS (6)
  - Lung disorder [Unknown]
  - Lymphadenopathy [Unknown]
  - Impaired healing [Unknown]
  - Skin ulcer [Unknown]
  - Pruritus [Unknown]
  - Therapeutic product effect decreased [Unknown]
